FAERS Safety Report 7670817-9 (Version None)
Quarter: 2011Q3

REPORT INFORMATION
  Report Type: 
  Country: None (occurrence: None)
  Receive Date: 20110803
  Receipt Date: 20110725
  Transmission Date: 20111222
  Serious: Yes (Hospitalization)
  Sender: FDA-Public Use
  Company Number: DKLU1072257

PATIENT
  Age: 1 Day
  Sex: Male

DRUGS (1)
  1. INDOCIN [Suspect]
     Indication: PATENT DUCTUS ARTERIOSUS
     Dosage: 0.2 MG MILLIGRAM(S), 1 IN 1 D, INTRAVENOUS (NOT OTHERWISE SPECIFIED)
     Route: 042
     Dates: start: 20100304, end: 20100304

REACTIONS (4)
  - GASTROINTESTINAL DISORDER [None]
  - GASTROINTESTINAL HAEMORRHAGE [None]
  - HYPERSENSITIVITY [None]
  - DISSEMINATED INTRAVASCULAR COAGULATION [None]
